FAERS Safety Report 6202743-6 (Version None)
Quarter: 2009Q2

REPORT INFORMATION
  Report Type: 
  Country: None (occurrence: None)
  Receive Date: 20090526
  Receipt Date: 20090522
  Transmission Date: 20091009
  Serious: Yes (Death)
  Sender: FDA-Public Use
  Company Number: PHHY2009MX20096

PATIENT
  Age: 71 Year
  Sex: Female

DRUGS (5)
  1. EXELON [Suspect]
     Indication: DEMENTIA ALZHEIMER'S TYPE
     Dosage: 1 DF, QD
  2. KEPPRA [Concomitant]
  3. CORDARONE [Concomitant]
  4. LASIX [Concomitant]
  5. ALDACTONE [Concomitant]

REACTIONS (1)
  - DEATH [None]
